FAERS Safety Report 7820548-7 (Version None)
Quarter: 2011Q4

REPORT INFORMATION
  Report Type: 
  Country: None (occurrence: None)
  Receive Date: 20111018
  Receipt Date: 20111006
  Transmission Date: 20120403
  Serious: Yes (Hospitalization, Other)
  Sender: FDA-Public Use
  Company Number: PHHY2011NL88606

PATIENT
  Age: 54 Year
  Sex: Female

DRUGS (8)
  1. CYCLOPHOSPHAMIDE [Suspect]
     Indication: BREAST CANCER
     Dosage: 950 MG, UNK
     Route: 042
     Dates: start: 20110722, end: 20110722
  2. TAXOTERE [Suspect]
     Indication: BREAST CANCER
     Dosage: 140 MG, UNK
     Route: 042
     Dates: start: 20110722, end: 20110722
  3. GRANISETRON [Concomitant]
  4. NEULASTA [Suspect]
  5. ZOMETA [Suspect]
     Indication: BREAST CANCER
     Dosage: 4 MG, UNK
     Route: 042
     Dates: start: 20110722, end: 20110722
  6. ADRIAMYCIN PFS [Suspect]
     Indication: BREAST CANCER
     Dosage: 95 MG, UNK
     Route: 042
     Dates: start: 20110722, end: 20110722
  7. ONDANSETRON [Concomitant]
  8. DEXAMETHASONE [Concomitant]

REACTIONS (8)
  - ALANINE AMINOTRANSFERASE INCREASED [None]
  - PHARYNGEAL INFLAMMATION [None]
  - PLATELET COUNT INCREASED [None]
  - WHITE BLOOD CELL COUNT DECREASED [None]
  - DIZZINESS [None]
  - HAEMOGLOBIN DECREASED [None]
  - CHEST DISCOMFORT [None]
  - NAUSEA [None]
